FAERS Safety Report 13461421 (Version 1)
Quarter: 2017Q2

REPORT INFORMATION
  Report Type: Spontaneous
  Country: US (occurrence: US)
  Receive Date: 20170420
  Receipt Date: 20170420
  Transmission Date: 20170830
  Serious: No
  Sender: FDA-Public Use
  Company Number: US-TEVA-722925USA

PATIENT
  Age: 62 Year
  Sex: Female
  Weight: 88 kg

DRUGS (1)
  1. BUPROPION EXTENDED RELEASE [Suspect]
     Active Substance: BUPROPION
     Indication: DEPRESSION
     Route: 065
     Dates: start: 201609

REACTIONS (2)
  - Tongue discomfort [Unknown]
  - Product odour abnormal [Unknown]

NARRATIVE: CASE EVENT DATE: 201609
